FAERS Safety Report 4882751-8 (Version None)
Quarter: 2006Q1

REPORT INFORMATION
  Report Type: 
  Country: None (occurrence: None)
  Receive Date: 20060117
  Receipt Date: 20050614
  Transmission Date: 20060701
  Serious: Yes (Death, Hospitalization, Other)
  Sender: FDA-Public Use
  Company Number: US-MERCK-0506USA02453

PATIENT
  Age: 48 Year
  Sex: Male

DRUGS (16)
  1. ZOCOR [Suspect]
     Route: 048
     Dates: start: 20020319, end: 20040501
  2. PREDNISONE [Concomitant]
     Route: 065
  3. CELLCEPT [Concomitant]
     Route: 065
  4. ENALAPRIL MALEATE [Concomitant]
     Route: 065
  5. METOPROLOL [Concomitant]
     Route: 065
  6. LASIX [Concomitant]
     Route: 065
  7. TUMS [Concomitant]
     Route: 065
  8. VIAGRA [Concomitant]
     Route: 065
  9. INSULIN GLARGINE [Concomitant]
     Route: 065
  10. HUMALOG [Concomitant]
     Route: 065
  11. HUMALOG [Concomitant]
     Route: 065
  12. DILTIAZEM HYDROCHLORIDE [Concomitant]
     Route: 065
  13. TOPROL-XL [Concomitant]
     Route: 065
  14. VITAMINS (UNSPECIFIED) [Concomitant]
     Route: 065
  15. COZAAR [Concomitant]
     Route: 048
  16. METOLAZONE [Concomitant]
     Route: 065

REACTIONS (24)
  - ADVERSE EVENT [None]
  - ANAEMIA OF CHRONIC DISEASE [None]
  - ATRIAL FIBRILLATION [None]
  - BLOOD CALCIUM INCREASED [None]
  - CARDIAC FAILURE CONGESTIVE [None]
  - CARDIOMYOPATHY [None]
  - CERUMEN IMPACTION [None]
  - COUGH [None]
  - DEEP VEIN THROMBOSIS [None]
  - DEPRESSED LEVEL OF CONSCIOUSNESS [None]
  - FROSTBITE [None]
  - GASTROENTERITIS VIRAL [None]
  - GINGIVAL DISORDER [None]
  - GOUT [None]
  - MUSCULOSKELETAL DISORDER [None]
  - PERIODONTAL DISEASE [None]
  - PERIPHERAL VASCULAR DISORDER [None]
  - PIRIFORMIS SYNDROME [None]
  - PNEUMONIA [None]
  - PULMONARY CONGESTION [None]
  - PYREXIA [None]
  - RENAL FAILURE ACUTE [None]
  - RHABDOMYOLYSIS [None]
  - VENTRICULAR TACHYCARDIA [None]
